FAERS Safety Report 4606020-6 (Version None)
Quarter: 2005Q1

REPORT INFORMATION
  Report Type: 
  Country: None (occurrence: None)
  Receive Date: 20050116
  Receipt Date: 20040513
  Transmission Date: 20050727
  Serious: Yes (Other)
  Sender: FDA-Public Use
  Company Number: HQWYE900414MAY04

PATIENT
  Sex: Male
  Weight: 101.24 kg

DRUGS (1)
  1. EFFEXOR [Suspect]
     Indication: BIPOLAR DISORDER
     Dosage: 225  MG 1X PER 1 DAY, ORAL
     Route: 048
     Dates: start: 20030901

REACTIONS (1)
  - BLOOD PRESSURE INCREASED [None]
